FAERS Safety Report 5243084-3 (Version None)
Quarter: 2007Q1

REPORT INFORMATION
  Report Type: 
  Country: None (occurrence: None)
  Receive Date: 20070215
  Receipt Date: 20070131
  Transmission Date: 20070707
  Serious: Yes (Other)
  Sender: FDA-Public Use
  Company Number: 2007US-05622

PATIENT
  Age: 59 Year
  Sex: 0

DRUGS (1)
  1. ISOTRETINOIN [Suspect]
     Dosage: 10 MG, 20 MG

REACTIONS (1)
  - DISEASE PROGRESSION [None]
